FAERS Safety Report 11838182 (Version 1)
Quarter: 2015Q4

REPORT INFORMATION
  Report Type: Spontaneous
  Country: US (occurrence: US)
  Receive Date: 20151215
  Receipt Date: 20151215
  Transmission Date: 20160305
  Serious: No
  Sender: FDA-Public Use
  Company Number: US-GLAXOSMITHKLINE-US2015157613

PATIENT
  Age: 55 Year
  Sex: Female

DRUGS (2)
  1. BENLYSTA [Suspect]
     Active Substance: BELIMUMAB
     Indication: SYSTEMIC LUPUS ERYTHEMATOSUS
     Dosage: UNK
     Route: 041
     Dates: start: 2014
  2. CELLCEPT [Concomitant]
     Active Substance: MYCOPHENOLATE MOFETIL\MYCOPHENOLATE MOFETIL HYDROCHLORIDE
     Indication: PRODUCT USED FOR UNKNOWN INDICATION
     Dosage: UNK

REACTIONS (10)
  - Chest discomfort [Recovered/Resolved]
  - Oral mucosal blistering [Not Recovered/Not Resolved]
  - Anosmia [Not Recovered/Not Resolved]
  - Constipation [Unknown]
  - Mouth ulceration [Unknown]
  - Drug ineffective [Unknown]
  - Abdominal pain [Unknown]
  - Ageusia [Not Recovered/Not Resolved]
  - Drug dose omission [Unknown]
  - Diarrhoea [Not Recovered/Not Resolved]

NARRATIVE: CASE EVENT DATE: 201510
